FAERS Safety Report 22376751 (Version 1)
Quarter: 2023Q2

REPORT INFORMATION
  Report Type: Report from Study
  Country: US (occurrence: US)
  Receive Date: 20230528
  Receipt Date: 20230528
  Transmission Date: 20230721
  Serious: Yes (Hospitalization)
  Sender: FDA-Public Use
  Company Number: US-ABBVIE-5181408

PATIENT
  Sex: Male

DRUGS (2)
  1. SKYRIZI [Suspect]
     Active Substance: RISANKIZUMAB-RZAA
     Indication: Psoriasis
     Dosage: FORM STRENGTH: 150 MG 150 MG/ML SUBCUTANEOUS ?WEEK 4 DOSE TOOK LATE
     Route: 058
     Dates: start: 202305
  2. SKYRIZI [Suspect]
     Active Substance: RISANKIZUMAB-RZAA
     Dosage: TIME INTERVAL: TOTAL: WEEK 0?FORM STRENGTH: 150 MG150 MG/ML SUBCUTANEOUS
     Route: 058
     Dates: start: 20230404, end: 20230404

REACTIONS (6)
  - Chest discomfort [Unknown]
  - Blood glucose increased [Recovering/Resolving]
  - Expired product administered [Unknown]
  - Oral herpes [Unknown]
  - Supraventricular tachycardia [Unknown]
  - Unevaluable event [Unknown]

NARRATIVE: CASE EVENT DATE: 20230101
